FAERS Safety Report 9533011 (Version 2)
Quarter: 2013Q3

REPORT INFORMATION
  Report Type: Report from Study
  Country: US (occurrence: US)
  Receive Date: 20130918
  Receipt Date: 20130918
  Transmission Date: 20140515
  Serious: Yes (Hospitalization)
  Sender: FDA-Public Use
  Company Number: US-ABBVIE-11P-163-0837351-00

PATIENT
  Age: 31 Year
  Sex: Female
  Weight: 69.01 kg

DRUGS (18)
  1. HUMIRA 40 MG/ 0.8 ML PRE-FILLED SYRINGE [Suspect]
     Indication: RHEUMATOID ARTHRITIS
     Dates: start: 20071101
  2. PRENATAL VITAMINS [Concomitant]
     Indication: PRODUCT USED FOR UNKNOWN INDICATION
     Route: 048
     Dates: start: 20070816
  3. PRILOSEC [Concomitant]
     Indication: PRODUCT USED FOR UNKNOWN INDICATION
     Route: 048
     Dates: start: 20070703
  4. AMBIEN [Concomitant]
     Indication: INSOMNIA
     Route: 048
     Dates: start: 20070703
  5. OMNICEF [Concomitant]
     Indication: SINUSITIS
     Route: 048
     Dates: start: 20080207
  6. AMOXICILLIN [Concomitant]
     Indication: SINUSITIS
     Route: 048
     Dates: start: 20080218, end: 20080225
  7. INFLUENZA VACCINE [Concomitant]
     Indication: PRODUCT USED FOR UNKNOWN INDICATION
     Dates: start: 20071031, end: 20071031
  8. TYLENOL [Concomitant]
     Indication: SINUS DISORDER
     Dates: start: 20070703
  9. ZYRTEC [Concomitant]
     Indication: HYPERSENSITIVITY
     Route: 048
     Dates: start: 20070703
  10. TYLENOL PM [Concomitant]
     Indication: INSOMNIA
     Dates: start: 20070703
  11. DEMEROL [Concomitant]
     Indication: NEPHROLITHIASIS
     Route: 048
     Dates: start: 20071122, end: 20071122
  12. DEMEROL [Concomitant]
     Route: 042
     Dates: start: 20071123, end: 20071124
  13. ULTRAM [Concomitant]
     Indication: RHEUMATOID ARTHRITIS
     Route: 048
     Dates: start: 20070901
  14. VALTREX [Concomitant]
     Indication: HERPES SIMPLEX
     Route: 048
     Dates: start: 20080301
  15. PHENERGAN [Concomitant]
     Indication: NAUSEA
     Route: 048
     Dates: start: 20070801, end: 20080131
  16. TUMS [Concomitant]
     Indication: DYSPEPSIA
     Dates: start: 20070801, end: 20080316
  17. DEPO MEDROL [Concomitant]
     Indication: PAIN
     Route: 050
     Dates: start: 20071101, end: 20071101
  18. DEPO MEDROL [Concomitant]
     Route: 050
     Dates: start: 20080226, end: 20080226

REACTIONS (3)
  - Nephrolithiasis [Recovered/Resolved]
  - Sinusitis [Unknown]
  - Herpes simplex [Unknown]
